FAERS Safety Report 18449043 (Version 3)
Quarter: 2020Q4

REPORT INFORMATION
  Report Type: Spontaneous
  Country: JP (occurrence: JP)
  Receive Date: 20201030
  Receipt Date: 20201116
  Transmission Date: 20210114
  Serious: Yes (Other)
  Sender: FDA-Public Use
  Company Number: JP-PFIZER INC-2019270078

PATIENT
  Age: 10 Decade
  Sex: Male

DRUGS (3)
  1. CARDENALIN [Concomitant]
     Active Substance: DOXAZOSIN MESYLATE
     Dosage: 1 MG, UNK
     Route: 048
  2. SUTENT [Suspect]
     Active Substance: SUNITINIB MALATE
     Dosage: 50 MG, CYCLIC (50 MG, 2 WEEKS ON 1 WEEK OFF)
  3. CONIEL [Concomitant]
     Active Substance: BENIDIPINE HYDROCHLORIDE
     Dosage: 8 MG, UNK
     Route: 048

REACTIONS (4)
  - Myelosuppression [Unknown]
  - Blood creatinine increased [Unknown]
  - Dysgeusia [Unknown]
  - Blood pressure increased [Unknown]
